FAERS Safety Report 5825141-3 (Version None)
Quarter: 2008Q3

REPORT INFORMATION
  Report Type: 
  Country: None (occurrence: None)
  Receive Date: 20080723
  Receipt Date: 20080620
  Transmission Date: 20090109
  Serious: Yes (Disabling)
  Sender: FDA-Public Use
  Company Number: SP01948

PATIENT
  Age: 56 Year
  Sex: Male
  Weight: 81.6475 kg

DRUGS (2)
  1. MOVIPREP [Suspect]
     Indication: COLONOSCOPY
     Dosage: 8 OZ,ORAL
     Route: 048
     Dates: start: 20080522, end: 20080522
  2. MOVIPREP [Suspect]
     Indication: PREOPERATIVE CARE
     Dosage: 8 OZ,ORAL
     Route: 048
     Dates: start: 20080522, end: 20080522

REACTIONS (2)
  - RETCHING [None]
  - VOMITING [None]
